FAERS Safety Report 8160862-1 (Version None)
Quarter: 2012Q1

REPORT INFORMATION
  Report Type: 
  Country: None (occurrence: None)
  Receive Date: 20120223
  Receipt Date: 20120220
  Transmission Date: 20120608
  Serious: Yes (Death)
  Sender: FDA-Public Use
  Company Number: PHHY2012CA002477

PATIENT
  Sex: Female

DRUGS (13)
  1. ALPRAZOLAM [Concomitant]
     Dosage: UNK UKN, UNK
  2. FUROSEMIDE [Concomitant]
     Dosage: UNK UKN, UNK
  3. ZOLEDRONOC ACID [Suspect]
     Dosage: UNK UKN, UNK
     Route: 042
     Dates: start: 20090408
  4. PREVACID [Concomitant]
     Dosage: UNK UKN, UNK
  5. TRAMADOL HCL [Concomitant]
     Dosage: UNK UKN, UNK
  6. ZOLEDRONOC ACID [Suspect]
     Indication: OSTEOPOROSIS
     Dosage: UNK UKN, UNK
     Route: 042
     Dates: start: 20070401
  7. VITAMIN D [Concomitant]
     Dosage: UNK UKN, UNK
  8. ZOLEDRONOC ACID [Suspect]
     Dosage: UNK UKN, UNK
     Route: 042
     Dates: start: 20100414
  9. PLAVIX [Concomitant]
     Dosage: UNK UKN, UNK
  10. SYNTHROID [Concomitant]
     Dosage: UNK UKN, UNK
  11. CALCIUM [Concomitant]
     Dosage: UNK UKN, UNK
  12. ZOPICLONE [Concomitant]
     Dosage: UNK UKN, UNK
  13. SIMVASTATIN [Concomitant]
     Dosage: UNK UKN, UNK

REACTIONS (2)
  - MYOCARDIAL INFARCTION [None]
  - MULTIMORBIDITY [None]
